FAERS Safety Report 21817336 (Version 1)
Quarter: 2023Q1

REPORT INFORMATION
  Report Type: Spontaneous
  Country: CN (occurrence: CN)
  Receive Date: 20230104
  Receipt Date: 20230104
  Transmission Date: 20230418
  Serious: Yes (Life-Threatening)
  Sender: FDA-Public Use
  Company Number: CN-BAYER-2022A175420

PATIENT
  Age: 35 Year
  Sex: Male
  Weight: 48 kg

DRUGS (2)
  1. GLUCOBAY [Interacting]
     Active Substance: ACARBOSE
     Indication: Type 1 diabetes mellitus
     Dosage: 50 MG, TID
     Route: 048
     Dates: start: 20220723, end: 20220730
  2. INSULIN ASPART [Interacting]
     Active Substance: INSULIN ASPART
     Indication: Type 1 diabetes mellitus
     Dosage: 12 U, QD
     Route: 058
     Dates: start: 20220724, end: 20220724

REACTIONS (4)
  - Hypoglycaemia [Recovered/Resolved]
  - Palpitations [Recovered/Resolved]
  - Chest discomfort [Recovered/Resolved]
  - Off label use [None]

NARRATIVE: CASE EVENT DATE: 20220723
